FAERS Safety Report 14143415 (Version 1)
Quarter: 2017Q4

REPORT INFORMATION
  Report Type: Spontaneous
  Country: FR (occurrence: FR)
  Receive Date: 20171030
  Receipt Date: 20171030
  Transmission Date: 20180321
  Serious: Yes (Other)
  Sender: FDA-Public Use
  Company Number: FR-AMGEN-FRASP2017159794

PATIENT
  Age: 61 Year
  Sex: Female

DRUGS (4)
  1. HYDROCORTISONE ROUSSEL [Concomitant]
     Active Substance: HYDROCORTISONE
     Dosage: 10 MG, UNK
     Route: 048
     Dates: start: 20101102
  2. PROLIA [Suspect]
     Active Substance: DENOSUMAB
     Indication: OSTEOPOROSIS
     Dosage: 60 MG, Q6MO
     Route: 042
     Dates: start: 20150520, end: 201611
  3. LEVOTHYROX [Concomitant]
     Active Substance: LEVOTHYROXINE
     Dosage: 100 MUG, 100 MCG MONDAY TO FRIDAY AND 75 MCG SATURDAY AND SUNDAY
     Route: 048
     Dates: start: 1993
  4. CHOLECALCIFEROL [Concomitant]
     Active Substance: CHOLECALCIFEROL
     Dosage: 100000 IU, Q2MO
     Route: 048

REACTIONS (3)
  - Basal cell carcinoma [Recovered/Resolved]
  - Abdominal pain [Recovered/Resolved]
  - Musculoskeletal pain [Recovered/Resolved]

NARRATIVE: CASE EVENT DATE: 2016
